FAERS Safety Report 4893004-6 (Version None)
Quarter: 2005Q4

REPORT INFORMATION
  Report Type: 
  Country: None (occurrence: None)
  Receive Date: 20051223
  Receipt Date: 20050425
  Transmission Date: 20060501
  Serious: Yes (Hospitalization)
  Sender: FDA-Public Use
  Company Number: PHEH2004US08129

PATIENT
  Age: 41 Year
  Sex: Male
  Weight: 103.9 kg

DRUGS (6)
  1. CLOZARIL [Suspect]
     Indication: PSYCHOTIC DISORDER
     Dosage: 300 MG, QHS, ORAL
     Route: 048
     Dates: start: 19960101, end: 20040705
  2. PROLIXIN [Suspect]
     Indication: SCHIZOAFFECTIVE DISORDER
     Dates: end: 20040711
  3. PAXIL [Suspect]
     Indication: PARAPHILIA
     Dosage: 30 MG, QHS, ORAL
     Route: 048
     Dates: start: 20040614
  4. ATENOLOL [Concomitant]
  5. CALCIUM (CALCIUM) [Concomitant]
  6. DIVALPROEX SODIUM [Concomitant]

REACTIONS (5)
  - BLOOD CREATINE PHOSPHOKINASE INCREASED [None]
  - DIZZINESS [None]
  - FALL [None]
  - HYPOTENSION [None]
  - TACHYCARDIA [None]
